FAERS Safety Report 11279635 (Version 1)
Quarter: 2015Q3

REPORT INFORMATION
  Report Type: Spontaneous
  Country: GB (occurrence: GB)
  Receive Date: 20150717
  Receipt Date: 20150717
  Transmission Date: 20151125
  Serious: Yes (Hospitalization, Other)
  Sender: FDA-Public Use
  Company Number: GB-MERCK-1506GBR014207

PATIENT
  Age: 60 Year
  Sex: Female
  Weight: 86 kg

DRUGS (9)
  1. TEMODAL [Suspect]
     Active Substance: TEMOZOLOMIDE
     Indication: GLIOBLASTOMA MULTIFORME
     Dosage: 150 MG, EVERY DAY (OD) (75MG/M2), CONCURRENT WITH RT(RADIOTHERAPY)
     Route: 048
     Dates: start: 20141229, end: 20150209
  2. TEMODAL [Suspect]
     Active Substance: TEMOZOLOMIDE
     Dosage: 200 MG, EVERY DAY (OD) (100MG/M2)/ X5 DAYS OUT OF 28
     Route: 048
     Dates: start: 20150408, end: 20150412
  3. BEZAFIBRATE [Concomitant]
     Active Substance: BEZAFIBRATE
     Dosage: 450 MG, QD
  4. DEXAMETHASONE TABLETS BP 500MCG [Concomitant]
     Active Substance: DEXAMETHASONE
     Dosage: 2 MG, QD
     Route: 048
     Dates: start: 201412
  5. AMLODIPINE [Concomitant]
     Active Substance: AMLODIPINE BESYLATE
     Dosage: 10 MG, QD
  6. LEVETIRACETAM. [Concomitant]
     Active Substance: LEVETIRACETAM
     Dosage: 500 MG, BID
     Dates: start: 20150410, end: 20150424
  7. LEVETIRACETAM. [Concomitant]
     Active Substance: LEVETIRACETAM
     Indication: SEIZURE
     Dosage: 250 MG, BID
     Dates: start: 20150103, end: 20150409
  8. TEMODAL [Suspect]
     Active Substance: TEMOZOLOMIDE
     Dosage: 200 MG, EVERY DAY (OD) (100MG/M2), CHEMO ALONE
     Route: 048
     Dates: start: 20150311, end: 20150315
  9. PANTOPRAZOLE [Concomitant]
     Active Substance: PANTOPRAZOLE SODIUM
     Dosage: 20 MG, QD

REACTIONS (5)
  - Seizure [Unknown]
  - Alanine aminotransferase increased [Not Recovered/Not Resolved]
  - Blood bilirubin increased [Unknown]
  - Neutrophil count increased [Recovered/Resolved]
  - Sepsis [Unknown]

NARRATIVE: CASE EVENT DATE: 20150130
